FAERS Safety Report 7632660-6 (Version None)
Quarter: 2011Q3

REPORT INFORMATION
  Report Type: 
  Country: None (occurrence: None)
  Receive Date: 20110725
  Receipt Date: 20101116
  Transmission Date: 20111222
  Serious: No
  Sender: FDA-Public Use
  Company Number: US-BRISTOL-MYERS SQUIBB COMPANY-15389091

PATIENT
  Age: 69 Year
  Sex: Female

DRUGS (3)
  1. CELEBREX [Concomitant]
     Dosage: (TOOK TWO TIMES ONE WEEK AGO, BUT HAS STOPPED),
  2. ACETAMINOPHEN [Concomitant]
  3. WARFARIN SODIUM [Suspect]
     Dosage: THROUGH FEB-2011

REACTIONS (2)
  - SALIVA DISCOLOURATION [None]
  - DRY MOUTH [None]
